FAERS Safety Report 12707326 (Version 1)
Quarter: 2016Q3

REPORT INFORMATION
  Report Type: Spontaneous
  Country: US (occurrence: US)
  Receive Date: 20160901
  Receipt Date: 20160901
  Transmission Date: 20161109
  Serious: No
  Sender: FDA-Public Use
  Company Number: US-THE MEDICINES COMPANY-US-MDCO-16-00304

PATIENT
  Age: 73 Year
  Sex: Female

DRUGS (3)
  1. GLIPIZIDE. [Concomitant]
     Active Substance: GLIPIZIDE
     Indication: PRODUCT USED FOR UNKNOWN INDICATION
     Dosage: NOT REPORTED
  2. ORBACTIV [Suspect]
     Active Substance: ORITAVANCIN
     Indication: INFECTION PROPHYLAXIS
     Dosage: 1/3 OF DOSE
     Route: 041
     Dates: start: 20160722, end: 20160722
  3. HYDROCODONE [Concomitant]
     Active Substance: HYDROCODONE
     Indication: PRODUCT USED FOR UNKNOWN INDICATION
     Dosage: NOT REPORTED

REACTIONS (5)
  - Chills [Recovered/Resolved]
  - Off label use [Unknown]
  - Blood glucose increased [Unknown]
  - Feeling hot [Unknown]
  - Headache [Not Recovered/Not Resolved]

NARRATIVE: CASE EVENT DATE: 20160722
